FAERS Safety Report 19287452 (Version 1)
Quarter: 2021Q2

REPORT INFORMATION
  Report Type: Spontaneous
  Country: US (occurrence: US)
  Receive Date: 20210521
  Receipt Date: 20210521
  Transmission Date: 20210717
  Serious: No
  Sender: FDA-Public Use
  Company Number: US-RADIUS HEALTH INC.-2020US003524

PATIENT
  Sex: Female
  Weight: 51.7 kg

DRUGS (5)
  1. ALEVE [Concomitant]
     Active Substance: NAPROXEN SODIUM
     Indication: PRODUCT USED FOR UNKNOWN INDICATION
  2. CLINDAMYCIN HYDROCHLORIDE. [Concomitant]
     Active Substance: CLINDAMYCIN HYDROCHLORIDE
     Indication: PRODUCT USED FOR UNKNOWN INDICATION
     Dosage: 300 MG
  3. SULFAMETHOXAZOLE;TRIMETHOPRIM [Concomitant]
     Active Substance: SULFAMETHOXAZOLE\TRIMETHOPRIM
     Indication: PRODUCT USED FOR UNKNOWN INDICATION
  4. TYMLOS [Suspect]
     Active Substance: ABALOPARATIDE
     Indication: OSTEOPOROSIS
     Dosage: 80 MCG, DAILY
     Route: 058
  5. NEOMYCIN POLYMIXIN [Concomitant]
     Active Substance: NEOMYCIN\POLYMYXIN
     Indication: PRODUCT USED FOR UNKNOWN INDICATION
     Route: 001

REACTIONS (3)
  - Musculoskeletal chest pain [Unknown]
  - Neck pain [Unknown]
  - Arthralgia [Unknown]
